FAERS Safety Report 25013865 (Version 5)
Quarter: 2025Q2

REPORT INFORMATION
  Report Type: Report from Study
  Country: AR (occurrence: AR)
  Receive Date: 20250226
  Receipt Date: 20250509
  Transmission Date: 20250717
  Serious: Yes (Other)
  Sender: AMGEN
  Company Number: AR-AMGEN-ARGSL2024177000

PATIENT
  Age: 72 Year
  Sex: Male

DRUGS (3)
  1. VECTIBIX [Suspect]
     Active Substance: PANITUMUMAB
     Indication: Colorectal cancer
     Route: 065
     Dates: start: 20240820
  2. OXALIPLATIN [Suspect]
     Active Substance: OXALIPLATIN
     Indication: Colorectal cancer
     Route: 065
  3. CAPECITABINE [Concomitant]
     Active Substance: CAPECITABINE
     Route: 065
     Dates: end: 202503

REACTIONS (32)
  - Chest pain [Unknown]
  - Paralysis [Unknown]
  - Thrombosis [Unknown]
  - Catheter placement [Unknown]
  - Pulmonary pain [Unknown]
  - Colitis [Unknown]
  - Neuropathy peripheral [Unknown]
  - Feeling abnormal [Unknown]
  - Pain of skin [Unknown]
  - Weight decreased [Unknown]
  - Flushing [Unknown]
  - Fatigue [Unknown]
  - Rash [Not Recovered/Not Resolved]
  - Nausea [Unknown]
  - Vomiting [Unknown]
  - Erythema [Not Recovered/Not Resolved]
  - Decreased immune responsiveness [Unknown]
  - Anaesthesia [Unknown]
  - Listless [Unknown]
  - Contusion [Unknown]
  - Skin burning sensation [Unknown]
  - Hypoaesthesia [Unknown]
  - Toxicity to various agents [Unknown]
  - Pruritus [Unknown]
  - Skin fissures [Unknown]
  - Illness [Unknown]
  - Gastrointestinal disorder [Recovered/Resolved]
  - Mobility decreased [Unknown]
  - Mental disorder [Unknown]
  - Hand deformity [Unknown]
  - Limb deformity [Unknown]
  - Toxicity to various agents [Unknown]

NARRATIVE: CASE EVENT DATE: 20240101
